FAERS Safety Report 4847804-9 (Version None)
Quarter: 2005Q4

REPORT INFORMATION
  Report Type: 
  Country: None (occurrence: None)
  Receive Date: 20051202
  Receipt Date: 20051122
  Transmission Date: 20060501
  Serious: Yes (Other)
  Sender: FDA-Public Use
  Company Number: 2005158344

PATIENT
  Sex: Male
  Weight: 77.1115 kg

DRUGS (2)
  1. LISTERINE (MENTHOL, METHYL SALICYLATE, EUCALYPTOL, THYMOL) [Suspect]
     Indication: ALCOHOLIC
     Dosage: HALF A BOTTLE DAILY ORAL
     Route: 048
  2. RISPERIDONE [Concomitant]

REACTIONS (2)
  - FEELING DRUNK [None]
  - INTENTIONAL DRUG MISUSE [None]
